FAERS Safety Report 10024506 (Version 1)
Quarter: 2014Q1

REPORT INFORMATION
  Report Type: Spontaneous
  Country: US (occurrence: US)
  Receive Date: 20140320
  Receipt Date: 20140320
  Transmission Date: 20141002
  Serious: No
  Sender: FDA-Public Use
  Company Number: US-ENDO PHARMACEUTICALS INC.-OPCR20140074

PATIENT
  Sex: Male

DRUGS (2)
  1. OPANA ER [Suspect]
     Indication: PAIN IN EXTREMITY
     Dosage: 30MG
     Route: 048
  2. OPANA ER [Suspect]
     Dosage: 40MG
     Route: 048

REACTIONS (1)
  - Feeling abnormal [Unknown]
